FAERS Safety Report 9710604 (Version 1)
Quarter: 2013Q4

REPORT INFORMATION
  Report Type: Spontaneous
  Country: US (occurrence: US)
  Receive Date: 20131126
  Receipt Date: 20131126
  Transmission Date: 20140711
  Serious: No
  Sender: FDA-Public Use
  Company Number: US-BRISTOL-MYERS SQUIBB COMPANY-19457167

PATIENT
  Age: 64 Year
  Sex: Female
  Weight: 149.66 kg

DRUGS (2)
  1. BYDUREON 2MG SUSPENSION [Suspect]
     Indication: TYPE 2 DIABETES MELLITUS
     Dosage: 22-SEP-2013
     Route: 058
     Dates: start: 2013
  2. METFORMIN [Concomitant]
     Dosage: 500 MG 2 TAB: BID

REACTIONS (1)
  - Pruritus [Not Recovered/Not Resolved]
